FAERS Safety Report 14279054 (Version 2)
Quarter: 2018Q1

REPORT INFORMATION
  Report Type: Spontaneous
  Country: CA (occurrence: CA)
  Receive Date: 20171212
  Receipt Date: 20180330
  Transmission Date: 20180508
  Serious: Yes (Death, Hospitalization)
  Sender: FDA-Public Use
  Company Number: CA-CELGENEUS-CAN-20171101132

PATIENT
  Age: 77 Year
  Sex: Female

DRUGS (8)
  1. REVLIMID [Suspect]
     Active Substance: LENALIDOMIDE
     Indication: PLASMA CELL MYELOMA
     Dosage: 10 MILLIGRAM
     Route: 048
     Dates: start: 201707
  2. POMALYST [Suspect]
     Active Substance: POMALIDOMIDE
     Indication: PLASMA CELL MYELOMA
     Dosage: 1.5 MILLIGRAM
     Route: 048
     Dates: start: 20171121
  3. HUMULIN N [Concomitant]
     Active Substance: INSULIN HUMAN
     Indication: DIABETES MELLITUS
     Route: 065
  4. DEXAMETHASONE. [Concomitant]
     Active Substance: DEXAMETHASONE
     Indication: PLASMA CELL MYELOMA
     Dosage: 20 MILLIGRAM
     Route: 065
  5. ROSUVASTATIN. [Concomitant]
     Active Substance: ROSUVASTATIN
     Indication: BLOOD CHOLESTEROL
     Dosage: 5 MILLIGRAM
     Route: 065
  6. SLOW K [Concomitant]
     Active Substance: POTASSIUM CHLORIDE
     Indication: CARDIAC DISORDER
     Route: 065
  7. MORPHINE [Concomitant]
     Active Substance: MORPHINE
     Indication: PAIN
     Dosage: 30 MILLIGRAM
     Route: 065
  8. SYNTHROID [Concomitant]
     Active Substance: LEVOTHYROXINE SODIUM
     Indication: THYROID DISORDER
     Dosage: 75 MICROGRAM
     Route: 065

REACTIONS (4)
  - Plasma cell myeloma [Not Recovered/Not Resolved]
  - Pyrexia [Recovered/Resolved]
  - Death [Fatal]
  - Neutropenia [Recovered/Resolved]

NARRATIVE: CASE EVENT DATE: 201710
